FAERS Safety Report 7651693 (Version 5)
Quarter: 2013Q2

REPORT INFORMATION
  Report Type: Spontaneous
  Country: US (occurrence: US)
  Receive Date: 20101101
  Receipt Date: 20130429
  Transmission Date: 20140414
  Serious: Yes (Hospitalization)
  Sender: FDA-Public Use
  Company Number: US-BAYER-201038392NA

PATIENT
  Age: 48 Year
  Sex: Female

DRUGS (6)
  1. YASMIN [Suspect]
     Indication: MENOPAUSE
  2. COUMADIN [Concomitant]
     Indication: DEEP VEIN THROMBOSIS
     Dosage: UNK
     Dates: start: 20030617, end: 200410
  3. COUMADIN [Concomitant]
     Indication: PULMONARY EMBOLISM
  4. ZOCOR [Concomitant]
     Dosage: UNK
     Dates: start: 20030617
  5. PAXIL [Concomitant]
     Dosage: 12.5 MG, UNK
     Dates: start: 20030617
  6. ESTROGEN [Concomitant]

REACTIONS (7)
  - Pulmonary embolism [None]
  - Deep vein thrombosis [None]
  - Injury [None]
  - Pain [None]
  - General physical health deterioration [None]
  - Anxiety [None]
  - Emotional distress [None]
